FAERS Safety Report 7743517-4 (Version None)
Quarter: 2011Q3

REPORT INFORMATION
  Report Type: 
  Country: None (occurrence: None)
  Receive Date: 20110912
  Receipt Date: 20110901
  Transmission Date: 20111222
  Serious: Yes (Hospitalization)
  Sender: FDA-Public Use
  Company Number: JP-JNJFOC-20110711928

PATIENT
  Sex: Female
  Weight: 50 kg

DRUGS (18)
  1. LANSOPRAZOLE [Concomitant]
     Route: 048
     Dates: start: 20110801
  2. DILTIAZEM HCL [Concomitant]
     Indication: HYPERTENSION
     Dates: start: 20110401, end: 20110501
  3. MOBIC [Concomitant]
     Route: 048
     Dates: start: 20110501, end: 20110601
  4. REMICADE [Suspect]
     Indication: RHEUMATOID ARTHRITIS
     Dosage: 3RD DOSE
     Route: 042
     Dates: start: 20110523
  5. REMICADE [Suspect]
     Dosage: 2ND DOSE ON UNSPECIFIED DATE
     Route: 042
  6. PREDNISONE [Concomitant]
     Indication: RHEUMATOID ARTHRITIS
     Route: 048
     Dates: start: 20110330, end: 20110522
  7. LASIX [Concomitant]
     Indication: HYPERTENSION
     Route: 048
     Dates: start: 20110401, end: 20110501
  8. REMICADE [Suspect]
     Route: 042
     Dates: start: 20110411
  9. PREDNISONE [Concomitant]
     Route: 048
     Dates: start: 20110523
  10. EDIROL [Concomitant]
     Route: 048
     Dates: start: 20110501, end: 20110601
  11. MOBIC [Concomitant]
     Route: 048
     Dates: start: 20110801
  12. MOBIC [Concomitant]
     Route: 048
     Dates: start: 20101001, end: 20110301
  13. ISOSORBIDE DINITRATE [Concomitant]
     Route: 048
     Dates: start: 20110501, end: 20110601
  14. MOBIC [Concomitant]
     Route: 048
     Dates: end: 20100901
  15. METHOTREXATE [Suspect]
     Indication: PRODUCT USED FOR UNKNOWN INDICATION
     Route: 048
  16. LANSOPRAZOLE [Concomitant]
     Indication: GASTROOESOPHAGEAL REFLUX DISEASE
     Route: 048
     Dates: start: 20110201, end: 20110601
  17. CLINORIL [Concomitant]
     Indication: RHEUMATOID ARTHRITIS
     Route: 048
     Dates: start: 20110401, end: 20110522
  18. FOLIC ACID [Concomitant]
     Indication: FOLATE DEFICIENCY
     Route: 048
     Dates: start: 20110501, end: 20110501

REACTIONS (1)
  - PNEUMOCYSTIS JIROVECI PNEUMONIA [None]
